FAERS Safety Report 14818502 (Version 2)
Quarter: 2018Q2

REPORT INFORMATION
  Report Type: Spontaneous
  Country: JP (occurrence: JP)
  Receive Date: 20180427
  Receipt Date: 20180616
  Transmission Date: 20180711
  Serious: Yes (Hospitalization, Other)
  Sender: FDA-Public Use
  Company Number: JP-AMGEN-JPNSP2018057606

PATIENT
  Age: 69 Year
  Sex: Female
  Weight: 36 kg

DRUGS (7)
  1. MAGMITT [Concomitant]
     Active Substance: MAGNESIUM OXIDE
     Dosage: UNK
     Route: 065
  2. RANMARK [Suspect]
     Active Substance: DENOSUMAB
     Indication: BONE LESION
     Dosage: 120 MG, Q4WK
     Route: 058
     Dates: start: 20170405
  3. HALAVEN [Concomitant]
     Active Substance: ERIBULIN MESYLATE
     Dosage: UNK
     Dates: end: 20180206
  4. RANMARK [Suspect]
     Active Substance: DENOSUMAB
     Indication: PAIN
  5. AROMASIN [Concomitant]
     Active Substance: EXEMESTANE
     Dosage: UNK
     Route: 065
     Dates: start: 20180206
  6. RANMARK [Suspect]
     Active Substance: DENOSUMAB
     Indication: METASTASES TO BONE
  7. IBRANCE [Concomitant]
     Active Substance: PALBOCICLIB
     Dosage: UNK
     Route: 065
     Dates: start: 20180206

REACTIONS (7)
  - Stomatitis [Unknown]
  - Sepsis [Unknown]
  - Oedema [Unknown]
  - Decreased appetite [Unknown]
  - Dehydration [Unknown]
  - Osteonecrosis of jaw [Unknown]
  - Dental caries [Unknown]

NARRATIVE: CASE EVENT DATE: 20180330
